FAERS Safety Report 10045991 (Version 2)
Quarter: 2014Q1

REPORT INFORMATION
  Report Type: Spontaneous
  Country: FR (occurrence: FR)
  Receive Date: 20140330
  Receipt Date: 20140330
  Transmission Date: 20141002
  Serious: Yes (Other)
  Sender: FDA-Public Use
  Company Number: FR-AMGEN-FRASP2014013326

PATIENT
  Age: 65 Year
  Sex: Female
  Weight: 65 kg

DRUGS (8)
  1. ENBREL [Suspect]
     Indication: PRODUCT USED FOR UNKNOWN INDICATION
     Dosage: 50 MG, UNK
     Route: 065
     Dates: start: 2007
  2. ACTONEL [Concomitant]
     Dosage: UNK
  3. CORTANCYL [Concomitant]
     Dosage: UNK
  4. PIASCLEDINE                        /01305801/ [Concomitant]
     Dosage: UNK
  5. LEVOTHYROX [Concomitant]
     Dosage: UNK
  6. OMEPRAZOLE [Concomitant]
     Dosage: UNK
  7. IMETH [Concomitant]
     Dosage: UNK
  8. FOLIC ACID [Concomitant]
     Dosage: UNK

REACTIONS (6)
  - Mass [Unknown]
  - Eye disorder [Unknown]
  - Eye irritation [Unknown]
  - Ocular hyperaemia [Unknown]
  - Conjunctival disorder [Unknown]
  - Scleral disorder [Unknown]
